FAERS Safety Report 7827983-1 (Version None)
Quarter: 2011Q4

REPORT INFORMATION
  Report Type: 
  Country: None (occurrence: None)
  Receive Date: 20111020
  Receipt Date: 20111017
  Transmission Date: 20120403
  Serious: Yes (Hospitalization)
  Sender: FDA-Public Use
  Company Number: US-ACTELION-A-US2011-45071

PATIENT

DRUGS (5)
  1. EPOPROSTENOL SODIUM [Concomitant]
     Indication: PULMONARY ARTERIAL HYPERTENSION
     Dosage: UNK
     Route: 042
     Dates: start: 20110914
  2. TRACLEER [Suspect]
     Indication: PULMONARY ARTERIAL HYPERTENSION
     Dosage: UNK
     Route: 048
     Dates: start: 20050712
  3. REVATIO [Concomitant]
  4. FUROSEMIDE [Concomitant]
  5. COUMADIN [Concomitant]

REACTIONS (8)
  - DYSPNOEA [None]
  - BLOOD IRON DECREASED [None]
  - PLASMAPHERESIS [None]
  - FOOD POISONING [None]
  - BLOOD GLUCOSE INCREASED [None]
  - SENSATION OF HEAVINESS [None]
  - HYPOAESTHESIA [None]
  - ASTHENIA [None]
